FAERS Safety Report 5770802-8 (Version None)
Quarter: 2008Q2

REPORT INFORMATION
  Report Type: 
  Country: None (occurrence: None)
  Receive Date: 20080613
  Receipt Date: 20080512
  Transmission Date: 20081010
  Serious: No
  Sender: FDA-Public Use
  Company Number: US-ABBOTT-08P-163-0451673-00

PATIENT
  Sex: Male
  Weight: 104.42 kg

DRUGS (4)
  1. HUMIRA [Suspect]
     Indication: ANKYLOSING SPONDYLITIS
     Route: 058
     Dates: start: 20071201, end: 20080512
  2. HUMIRA [Suspect]
     Route: 058
     Dates: start: 20080512
  3. ACETAMINOPHEN W/ CODEINE [Concomitant]
     Indication: PAIN
     Route: 048
     Dates: start: 20071001
  4. IBUROFEN [Concomitant]
     Indication: PAIN
     Route: 048
     Dates: start: 20071001

REACTIONS (1)
  - DRUG INEFFECTIVE [None]
